FAERS Safety Report 8922523 (Version 1)
Quarter: 2012Q4

REPORT INFORMATION
  Report Type: 
  Country: SE (occurrence: SE)
  Receive Date: 20121123
  Receipt Date: 20121123
  Transmission Date: 20130627
  Serious: Yes (Hospitalization)
  Sender: FDA-Public Use
  Company Number: SE-PFIZER INC-2012290559

PATIENT
  Age: 37 Year
  Sex: Male
  Weight: 87.7 kg

DRUGS (12)
  1. GENOTROPIN [Suspect]
     Dosage: 0.2 mg, 1x/day, 7 injections/week
     Route: 058
     Dates: start: 20081022
  2. BEHEPAN [Concomitant]
     Indication: VITAMIN B12 DEFICIENCY
     Dosage: UNK
     Dates: start: 20060929
  3. METFORMIN [Concomitant]
     Indication: DIABETES MELLITUS
     Dosage: UNK
     Dates: start: 20060929
  4. ATARAX [Concomitant]
     Indication: ANXIETY
     Dosage: UNK
     Dates: start: 20080926
  5. ZYPREXA [Concomitant]
     Indication: PSYCHOTIC DISORDER
     Dosage: UNK
     Dates: start: 20081002
  6. THERALEN [Concomitant]
     Indication: INSOMNIA
     Dosage: UNK
     Dates: start: 20081005
  7. XENICAL [Concomitant]
     Indication: OBESITY
     Dosage: UNK
     Dates: start: 20081010
  8. ZOPICLONE [Concomitant]
     Indication: SLEEP DISORDER
     Dosage: UNK
     Dates: start: 20081016
  9. EFEXOR [Concomitant]
     Indication: DEPRESSION
     Dosage: UNK
     Dates: start: 20081121
  10. STESOLID [Concomitant]
     Indication: DEPRESSION
     Dosage: UNK
     Dates: start: 20090112
  11. MIRTAZAPINE [Concomitant]
     Indication: DEPRESSION
     Dosage: UNK
     Dates: start: 20090127
  12. PROPAVAN [Concomitant]
     Indication: SLEEP DISTURBANCE
     Dosage: UNK
     Dates: start: 20090127

REACTIONS (1)
  - Mental disorder [Unknown]
